FAERS Safety Report 23333469 (Version 2)
Quarter: 2023Q4

REPORT INFORMATION
  Report Type: Spontaneous
  Country: ES (occurrence: ES)
  Receive Date: 20231222
  Receipt Date: 20231228
  Transmission Date: 20240110
  Serious: Yes (Death, Other)
  Sender: FDA-Public Use
  Company Number: ES-GILEAD-2023-0656190

PATIENT
  Sex: Male

DRUGS (1)
  1. YESCARTA [Suspect]
     Active Substance: AXICABTAGENE CILOLEUCEL
     Indication: Diffuse large B-cell lymphoma
     Dosage: UNK (INFUSION)
     Route: 065
     Dates: start: 20220413, end: 20230413

REACTIONS (1)
  - Diffuse large B-cell lymphoma [Fatal]
